FAERS Safety Report 10841591 (Version 1)
Quarter: 2015Q1

REPORT INFORMATION
  Report Type: Spontaneous
  Country: US (occurrence: US)
  Receive Date: 20150220
  Receipt Date: 20150220
  Transmission Date: 20150721
  Serious: Yes (Hospitalization, Other)
  Sender: FDA-Public Use
  Company Number: US-BIOGENIDEC-2015BI018053

PATIENT
  Age: 56 Year
  Sex: Female

DRUGS (5)
  1. AVONEX [Suspect]
     Active Substance: INTERFERON BETA-1A
     Indication: MULTIPLE SCLEROSIS
     Route: 030
     Dates: start: 2003, end: 201501
  2. LYRICA [Concomitant]
     Active Substance: PREGABALIN
     Indication: PAIN
  3. GABAPENTIN. [Concomitant]
     Active Substance: GABAPENTIN
     Indication: PAIN
  4. REMERON [Concomitant]
     Active Substance: MIRTAZAPINE
     Indication: WEIGHT INCREASED
  5. REMERON [Concomitant]
     Active Substance: MIRTAZAPINE
     Indication: SLEEP DISORDER

REACTIONS (9)
  - Alcohol poisoning [Unknown]
  - Weight decreased [Not Recovered/Not Resolved]
  - Chills [Recovered/Resolved]
  - Crying [Unknown]
  - Hypertension [Not Recovered/Not Resolved]
  - Myocardial infarction [Recovered/Resolved]
  - Ear pain [Recovered/Resolved]
  - Breast cancer [Recovered/Resolved]
  - Depressed mood [Unknown]

NARRATIVE: CASE EVENT DATE: 2006
